FAERS Safety Report 7803480-4 (Version None)
Quarter: 2011Q4

REPORT INFORMATION
  Report Type: 
  Country: None (occurrence: None)
  Receive Date: 20111007
  Receipt Date: 20110928
  Transmission Date: 20120403
  Serious: Yes (Hospitalization)
  Sender: FDA-Public Use
  Company Number: US-RB-032661-11

PATIENT
  Age: 52 Year
  Sex: Female

DRUGS (1)
  1. SUBOXONE [Suspect]
     Indication: PRODUCT USED FOR UNKNOWN INDICATION
     Route: 065

REACTIONS (4)
  - OEDEMA PERIPHERAL [None]
  - ARTHRALGIA [None]
  - CHEST PAIN [None]
  - PAIN IN EXTREMITY [None]
